FAERS Safety Report 15515633 (Version 1)
Quarter: 2018Q4

REPORT INFORMATION
  Report Type: Spontaneous
  Country: US (occurrence: US)
  Receive Date: 20181017
  Receipt Date: 20181017
  Transmission Date: 20190205
  Serious: Yes (Hospitalization)
  Sender: FDA-Public Use
  Company Number: US-ROCHE-2192237

PATIENT
  Age: 52 Year
  Sex: Female
  Weight: 102.15 kg

DRUGS (3)
  1. ESBRIET [Suspect]
     Active Substance: PIRFENIDONE
     Indication: IDIOPATHIC PULMONARY FIBROSIS
     Dosage: ON DAY 1-7
     Route: 048
     Dates: start: 20180726, end: 20180921
  2. ESBRIET [Suspect]
     Active Substance: PIRFENIDONE
     Dosage: 2 TABLETS DAYS 8-14.
     Route: 048
     Dates: start: 20180726, end: 20180921
  3. ESBRIET [Suspect]
     Active Substance: PIRFENIDONE
     Dosage: 3 TABLETS ON DAY 15 AFTER MEALS
     Route: 048
     Dates: start: 20180726, end: 20180921

REACTIONS (1)
  - Muscle fatigue [Recovered/Resolved]

NARRATIVE: CASE EVENT DATE: 20180726
